FAERS Safety Report 13803047 (Version 2)
Quarter: 2017Q3

REPORT INFORMATION
  Report Type: Spontaneous
  Country: RO (occurrence: RO)
  Receive Date: 20170728
  Receipt Date: 20170808
  Transmission Date: 20171127
  Serious: Yes (Hospitalization, Other)
  Sender: FDA-Public Use
  Company Number: RO-AMGEN-ROUSP2017113269

PATIENT
  Age: 61 Year
  Sex: Female
  Weight: 65 kg

DRUGS (2)
  1. ENBREL [Suspect]
     Active Substance: ETANERCEPT
     Indication: RHEUMATOID ARTHRITIS
     Dosage: 50 MG, WEEKLY
     Route: 058
     Dates: start: 20070212, end: 20160712
  2. LEFLUNOMIDE. [Concomitant]
     Active Substance: LEFLUNOMIDE
     Indication: RHEUMATOID ARTHRITIS
     Dosage: 20 MG, DAILY
     Route: 048

REACTIONS (3)
  - Intervertebral discitis [Recovering/Resolving]
  - Intervertebral disc protrusion [Recovering/Resolving]
  - Wound infection staphylococcal [Recovered/Resolved with Sequelae]

NARRATIVE: CASE EVENT DATE: 201606
